FAERS Safety Report 9876902 (Version 1)
Quarter: 2014Q1

REPORT INFORMATION
  Report Type: Spontaneous
  Country: NL (occurrence: None)
  Receive Date: 20140204
  Receipt Date: 20140204
  Transmission Date: 20141002
  Serious: Yes (Other)
  Sender: FDA-Public Use
  Company Number: B0963984A

PATIENT
  Age: 50 Year
  Sex: Female

DRUGS (6)
  1. PAROXETINE HYDROCHLORIDE [Suspect]
     Indication: DEPRESSION
     Route: 048
     Dates: start: 201308, end: 20131118
  2. MIGRAFIN [Concomitant]
  3. BUPROPION HYDROCHLORIDE [Concomitant]
  4. LACTULOSE [Concomitant]
  5. OXAZEPAM [Concomitant]
  6. PANTOPRAZOLE [Concomitant]
     Indication: DEPRESSION
     Route: 048
     Dates: start: 201308, end: 20131118

REACTIONS (4)
  - Eye pain [None]
  - Glaucoma [None]
  - Conjunctivitis viral [None]
  - Fluid retention [None]
